FAERS Safety Report 26077117 (Version 1)
Quarter: 2025Q4

REPORT INFORMATION
  Report Type: Spontaneous
  Country: JP (occurrence: JP)
  Receive Date: 20251121
  Receipt Date: 20251121
  Transmission Date: 20260118
  Serious: Yes (Other)
  Sender: EISAI
  Company Number: JP-Eisai-202510678_ART_P_1

PATIENT
  Sex: Female

DRUGS (1)
  1. DONEPEZIL [Suspect]
     Active Substance: DONEPEZIL
     Indication: Dementia Alzheimer^s type
     Dosage: DOSE AND FREQUENCY UNKNOWN
     Route: 048

REACTIONS (4)
  - Aggression [Unknown]
  - Depressive symptom [Recovering/Resolving]
  - Anger [Recovering/Resolving]
  - Social avoidant behaviour [Unknown]
